FAERS Safety Report 5871837-7 (Version None)
Quarter: 2008Q3

REPORT INFORMATION
  Report Type: 
  Country: None (occurrence: None)
  Receive Date: 20080905
  Receipt Date: 20080826
  Transmission Date: 20090109
  Serious: Yes (Other)
  Sender: FDA-Public Use
  Company Number: DE-JNJFOC-20080805947

PATIENT
  Age: 49 Year
  Sex: Female
  Weight: 70 kg

DRUGS (2)
  1. REMICADE [Suspect]
     Indication: POLYARTHRITIS
     Route: 042
  2. LEFLUNOMIDE [Concomitant]
     Indication: POLYARTHRITIS
     Route: 048

REACTIONS (5)
  - CHEST PAIN [None]
  - COLD SWEAT [None]
  - INFUSION RELATED REACTION [None]
  - OROPHARYNGEAL PAIN [None]
  - VERTIGO [None]
